FAERS Safety Report 9252833 (Version 1)
Quarter: 2013Q2

REPORT INFORMATION
  Report Type: Spontaneous
  Country: US (occurrence: US)
  Receive Date: 20130424
  Receipt Date: 20130424
  Transmission Date: 20140414
  Serious: No
  Sender: FDA-Public Use
  Company Number: US-BAUSCH-BL-2012-001351

PATIENT
  Age: 59 Year
  Sex: Female
  Weight: 73.09 kg

DRUGS (3)
  1. LOTEMAX (LOTEPREDNOL ETABONATE OPHTHALMIC SUSPENSION 0.5%) [Suspect]
     Indication: PRODUCT USED FOR UNKNOWN INDICATION
     Dosage: 1 DROP IN EACH EYE; ONCE DAILY
     Route: 047
     Dates: start: 201208, end: 201209
  2. OLOPATADINE HYDROCHLORIDE [Suspect]
  3. CARMELLOSE [Concomitant]

REACTIONS (7)
  - Foreign body sensation in eyes [Not Recovered/Not Resolved]
  - Conjunctivitis [Not Recovered/Not Resolved]
  - Dry eye [Not Recovered/Not Resolved]
  - Photophobia [Not Recovered/Not Resolved]
  - Decreased appetite [Not Recovered/Not Resolved]
  - Back pain [Not Recovered/Not Resolved]
  - Application site odour [Not Recovered/Not Resolved]
